FAERS Safety Report 8569373-2 (Version None)
Quarter: 2012Q3

REPORT INFORMATION
  Report Type: 
  Country: None (occurrence: None)
  Receive Date: 20120803
  Receipt Date: 20120213
  Transmission Date: 20120928
  Serious: No
  Sender: FDA-Public Use
  Company Number: US-ABBOTT-12P-163-0906900-00

PATIENT
  Sex: Male
  Weight: 77.18 kg

DRUGS (2)
  1. NIASPAN [Suspect]
     Indication: PRODUCT USED FOR UNKNOWN INDICATION
     Dates: start: 20110101
  2. NIASPAN [Suspect]
     Dates: start: 20120101

REACTIONS (6)
  - BACK PAIN [None]
  - HYPERHIDROSIS [None]
  - DIZZINESS [None]
  - ASTHENIA [None]
  - PAIN IN EXTREMITY [None]
  - GAIT DISTURBANCE [None]
